FAERS Safety Report 20247338 (Version 3)
Quarter: 2022Q1

REPORT INFORMATION
  Report Type: Spontaneous
  Country: US (occurrence: None)
  Receive Date: 20211229
  Receipt Date: 20220124
  Transmission Date: 20220423
  Serious: No
  Sender: FDA-Public Use
  Company Number: 2021A872865

PATIENT
  Sex: Female
  Weight: 53.5 kg

DRUGS (3)
  1. CALQUENCE [Suspect]
     Active Substance: ACALABRUTINIB
     Indication: Chronic lymphocytic leukaemia
     Route: 048
     Dates: start: 20211209
  2. VITAMIN D [Concomitant]
     Active Substance: VITAMIN D NOS
  3. UBIQUINOL [Concomitant]
     Active Substance: UBIQUINOL

REACTIONS (1)
  - Gastrointestinal sounds abnormal [Unknown]
